FAERS Safety Report 11115790 (Version 1)
Quarter: 2015Q2

REPORT INFORMATION
  Report Type: Spontaneous
  Country: US (occurrence: US)
  Receive Date: 20150515
  Receipt Date: 20150515
  Transmission Date: 20150821
  Serious: Yes (Other)
  Sender: FDA-Public Use
  Company Number: US-PFIZER INC-2015158587

PATIENT
  Sex: Male

DRUGS (1)
  1. VIAGRA [Suspect]
     Active Substance: SILDENAFIL CITRATE
     Dosage: 100 MG, TAKE ONE OR TWO EVERY DAY

REACTIONS (7)
  - Penile erythema [Unknown]
  - Anorgasmia [Unknown]
  - Pruritus genital [Unknown]
  - Erection increased [Unknown]
  - Intentional product misuse [Unknown]
  - Back pain [Unknown]
  - Ejaculation disorder [Unknown]

NARRATIVE: CASE EVENT DATE: 2015
